FAERS Safety Report 20842522 (Version 5)
Quarter: 2022Q3

REPORT INFORMATION
  Report Type: Spontaneous
  Country: JP (occurrence: JP)
  Receive Date: 20220518
  Receipt Date: 20220828
  Transmission Date: 20221026
  Serious: Yes (Hospitalization, Other)
  Sender: FDA-Public Use
  Company Number: JP-NOVARTISPH-NVSJ2022JP090341

PATIENT
  Age: 82 Year
  Sex: Female
  Weight: 70 kg

DRUGS (7)
  1. ENTRESTO [Suspect]
     Active Substance: SACUBITRIL\VALSARTAN
     Indication: Cardiac failure chronic
     Dosage: 50 MG, BID
     Route: 048
     Dates: start: 20211209, end: 20211217
  2. ENTRESTO [Suspect]
     Active Substance: SACUBITRIL\VALSARTAN
     Dosage: 100 MG, BID
     Route: 048
     Dates: start: 20211218, end: 20220117
  3. ENTRESTO [Suspect]
     Active Substance: SACUBITRIL\VALSARTAN
     Dosage: 50 MG, BID
     Route: 048
  4. PITAVASTATIN CALCIUM [Suspect]
     Active Substance: PITAVASTATIN CALCIUM
     Indication: Dyslipidaemia
     Dosage: 1 MG
     Route: 048
     Dates: start: 20210907, end: 20220107
  5. SPIRONOLACTONE [Suspect]
     Active Substance: SPIRONOLACTONE
     Indication: Cardiac failure chronic
     Dosage: 50 MG
     Route: 048
     Dates: start: 20211130
  6. EBASTINE [Concomitant]
     Active Substance: EBASTINE
     Indication: Rhinitis allergic
     Dosage: 10 MG
     Route: 048
     Dates: start: 20210903
  7. ASPIRIN [Concomitant]
     Active Substance: ASPIRIN
     Indication: Angina pectoris
     Dosage: 100 MG
     Route: 048
     Dates: start: 19990615

REACTIONS (11)
  - Fall [Unknown]
  - Blood creatine phosphokinase increased [Recovering/Resolving]
  - Muscular weakness [Recovering/Resolving]
  - Gait disturbance [Recovering/Resolving]
  - Cerebral infarction [Unknown]
  - Rhabdomyolysis [Unknown]
  - Cardiac failure chronic [Unknown]
  - Oedema [Unknown]
  - Myalgia [Recovering/Resolving]
  - Fatigue [Not Recovered/Not Resolved]
  - Asthenia [Recovering/Resolving]

NARRATIVE: CASE EVENT DATE: 20220118
